FAERS Safety Report 4596680-0 (Version None)
Quarter: 2005Q1

REPORT INFORMATION
  Report Type: 
  Country: None (occurrence: None)
  Receive Date: 20050228
  Receipt Date: 20031120
  Transmission Date: 20050727
  Serious: Yes (Hospitalization)
  Sender: FDA-Public Use
  Company Number: 6784

PATIENT
  Age: 53 Year
  Sex: Female

DRUGS (3)
  1. CYCLOSPORINE [Suspect]
     Indication: MYOSITIS
     Dosage: 100 MG
     Route: 048
  2. METHOTREXATE [Suspect]
     Dosage: 10 MG
     Route: 030
  3. PREDNISOLONE [Suspect]
     Dosage: 5 MG

REACTIONS (5)
  - BURSITIS [None]
  - C-REACTIVE PROTEIN INCREASED [None]
  - JOINT EFFUSION [None]
  - MYCOBACTERIAL INFECTION [None]
  - NEUTROPHIL COUNT INCREASED [None]
